FAERS Safety Report 18572684 (Version 1)
Quarter: 2020Q4

REPORT INFORMATION
  Report Type: Spontaneous
  Country: GB (occurrence: GB)
  Receive Date: 20201203
  Receipt Date: 20201203
  Transmission Date: 20210114
  Serious: Yes (Disabling, Other)
  Sender: FDA-Public Use
  Company Number: GB-DEXPHARM-20201073

PATIENT
  Age: 16 Year
  Sex: Male
  Weight: 40 kg

DRUGS (6)
  1. SODIUM VALPROATE [Concomitant]
     Active Substance: VALPROATE SODIUM
  2. MEZZOPRAM [Suspect]
     Active Substance: OMEPRAZOLE MAGNESIUM
     Route: 048
     Dates: start: 20200401, end: 20200720
  3. PARACETAMOL [Concomitant]
     Active Substance: ACETAMINOPHEN
  4. LACTULOSE. [Concomitant]
     Active Substance: LACTULOSE
  5. TRIHEXYPHENIDYL HYDROCHLORIDE. [Concomitant]
     Active Substance: TRIHEXYPHENIDYL HYDROCHLORIDE
  6. CHLORAL HYDRATE [Concomitant]
     Active Substance: CHLORAL HYDRATE

REACTIONS (1)
  - Tooth injury [Not Recovered/Not Resolved]

NARRATIVE: CASE EVENT DATE: 20200620
